FAERS Safety Report 10926810 (Version 3)
Quarter: 2015Q2

REPORT INFORMATION
  Report Type: Spontaneous
  Country: IT (occurrence: None)
  Receive Date: 20150316
  Receipt Date: 20150403
  Transmission Date: 20150821
  Serious: Yes (Hospitalization)
  Sender: FDA-Public Use
  Company Number: NL01PV15_38621

PATIENT
  Age: 75 Year
  Sex: Male

DRUGS (40)
  1. ZOLPIDEM [Suspect]
     Active Substance: ZOLPIDEM\ZOLPIDEM TARTRATE
     Indication: EPILEPSY
     Dosage: 40 MG, TOTAL
     Route: 048
     Dates: start: 20150209, end: 20150209
  2. LASIX [Suspect]
     Active Substance: FUROSEMIDE
     Indication: HYPERTENSION
     Dosage: 100 MG, TOTAL
     Route: 048
     Dates: start: 20150209, end: 20150209
  3. XANAX [Suspect]
     Active Substance: ALPRAZOLAM
     Indication: ANXIETY
     Dosage: 4 MG, TOTAL
     Route: 048
     Dates: start: 20150209, end: 20150209
  4. KEPPRA [Suspect]
     Active Substance: LEVETIRACETAM
     Indication: HYPERCHOLESTEROLAEMIA
     Dosage: 2000 MG, TOTAL
     Route: 048
     Dates: start: 20150209, end: 20150209
  5. ZOLPIDEM [Suspect]
     Active Substance: ZOLPIDEM\ZOLPIDEM TARTRATE
     Indication: HYPERCHOLESTEROLAEMIA
     Dosage: 40 MG, TOTAL
     Route: 048
     Dates: start: 20150209, end: 20150209
  6. LANSOPRAZOLE (LANSOPRAZOLE) [Suspect]
     Active Substance: LANSOPRAZOLE
     Indication: HYPERCHOLESTEROLAEMIA
     Dosage: 60 MG TOTAL, TOTAL; GASTRO-RESISTANT TABLET
     Route: 048
     Dates: start: 20150209, end: 20150209
  7. DILATREND [Suspect]
     Active Substance: CARVEDILOL
     Indication: DRUG ABUSE
     Dosage: 50 MG TOTAL
     Route: 048
     Dates: start: 20150209, end: 20150209
  8. LASIX [Suspect]
     Active Substance: FUROSEMIDE
     Indication: HYPERCHOLESTEROLAEMIA
     Dosage: 100 MG, TOTAL
     Route: 048
     Dates: start: 20150209, end: 20150209
  9. NORVASC [Suspect]
     Active Substance: AMLODIPINE BESYLATE
     Indication: DRUG ABUSE
     Dosage: 20 MG, TOTAL
     Route: 048
     Dates: start: 20150209, end: 20150209
  10. NORVASC [Suspect]
     Active Substance: AMLODIPINE BESYLATE
     Indication: ANXIETY
     Dosage: 20 MG, TOTAL
     Route: 048
     Dates: start: 20150209, end: 20150209
  11. LANSOPRAZOLE (LANSOPRAZOLE) [Suspect]
     Active Substance: LANSOPRAZOLE
     Indication: ANXIETY
     Dosage: 60 MG TOTAL, TOTAL; GASTRO-RESISTANT TABLET
     Route: 048
     Dates: start: 20150209, end: 20150209
  12. XANAX [Suspect]
     Active Substance: ALPRAZOLAM
     Indication: EPILEPSY
     Dosage: 4 MG, TOTAL
     Route: 048
     Dates: start: 20150209, end: 20150209
  13. NORVASC [Suspect]
     Active Substance: AMLODIPINE BESYLATE
     Indication: HYPERTENSION
     Dosage: 20 MG, TOTAL
     Route: 048
     Dates: start: 20150209, end: 20150209
  14. LANSOPRAZOLE (LANSOPRAZOLE) [Suspect]
     Active Substance: LANSOPRAZOLE
     Indication: DRUG ABUSE
     Dosage: 60 MG TOTAL, TOTAL; GASTRO-RESISTANT TABLET
     Route: 048
     Dates: start: 20150209, end: 20150209
  15. DILATREND [Suspect]
     Active Substance: CARVEDILOL
     Indication: HYPERTENSION
     Dosage: 50 MG TOTAL
     Route: 048
     Dates: start: 20150209, end: 20150209
  16. DILATREND [Suspect]
     Active Substance: CARVEDILOL
     Indication: EPILEPSY
     Dosage: 50 MG TOTAL
     Route: 048
     Dates: start: 20150209, end: 20150209
  17. LASIX [Suspect]
     Active Substance: FUROSEMIDE
     Indication: EPILEPSY
     Dosage: 100 MG, TOTAL
     Route: 048
     Dates: start: 20150209, end: 20150209
  18. LASIX [Suspect]
     Active Substance: FUROSEMIDE
     Indication: ANXIETY
     Dosage: 100 MG, TOTAL
     Route: 048
     Dates: start: 20150209, end: 20150209
  19. XANAX [Suspect]
     Active Substance: ALPRAZOLAM
     Indication: DRUG ABUSE
     Dosage: 4 MG, TOTAL
     Route: 048
     Dates: start: 20150209, end: 20150209
  20. XANAX [Suspect]
     Active Substance: ALPRAZOLAM
     Indication: HYPERCHOLESTEROLAEMIA
     Dosage: 4 MG, TOTAL
     Route: 048
     Dates: start: 20150209, end: 20150209
  21. KEPPRA [Suspect]
     Active Substance: LEVETIRACETAM
     Indication: DRUG ABUSE
     Dosage: 2000 MG, TOTAL
     Route: 048
     Dates: start: 20150209, end: 20150209
  22. KEPPRA [Suspect]
     Active Substance: LEVETIRACETAM
     Indication: EPILEPSY
     Dosage: 2000 MG, TOTAL
     Route: 048
     Dates: start: 20150209, end: 20150209
  23. ZOLPIDEM [Suspect]
     Active Substance: ZOLPIDEM\ZOLPIDEM TARTRATE
     Indication: ANXIETY
     Dosage: 40 MG, TOTAL
     Route: 048
     Dates: start: 20150209, end: 20150209
  24. LANSOPRAZOLE (LANSOPRAZOLE) [Suspect]
     Active Substance: LANSOPRAZOLE
     Indication: HYPERTENSION
     Dosage: 60 MG TOTAL, TOTAL; GASTRO-RESISTANT TABLET
     Route: 048
     Dates: start: 20150209, end: 20150209
  25. DILATREND [Suspect]
     Active Substance: CARVEDILOL
     Indication: ANXIETY
     Dosage: 50 MG TOTAL
     Route: 048
     Dates: start: 20150209, end: 20150209
  26. KEPPRA [Suspect]
     Active Substance: LEVETIRACETAM
     Indication: HYPERTENSION
     Dosage: 2000 MG, TOTAL
     Route: 048
     Dates: start: 20150209, end: 20150209
  27. NORVASC [Suspect]
     Active Substance: AMLODIPINE BESYLATE
     Indication: HYPERCHOLESTEROLAEMIA
     Dosage: 20 MG, TOTAL
     Route: 048
     Dates: start: 20150209, end: 20150209
  28. SIMVASTATIN (SIMVASTATIN) [Suspect]
     Active Substance: SIMVASTATIN
     Indication: EPILEPSY
     Dosage: 80 MG, TOTAL
     Dates: start: 20150209, end: 20150209
  29. LANSOPRAZOLE (LANSOPRAZOLE) [Suspect]
     Active Substance: LANSOPRAZOLE
     Indication: EPILEPSY
     Dosage: 60 MG TOTAL, TOTAL; GASTRO-RESISTANT TABLET
     Route: 048
     Dates: start: 20150209, end: 20150209
  30. DILATREND [Suspect]
     Active Substance: CARVEDILOL
     Indication: HYPERCHOLESTEROLAEMIA
     Dosage: 50 MG TOTAL
     Route: 048
     Dates: start: 20150209, end: 20150209
  31. ZOLPIDEM [Suspect]
     Active Substance: ZOLPIDEM\ZOLPIDEM TARTRATE
     Indication: HYPERTENSION
     Dosage: 40 MG, TOTAL
     Route: 048
     Dates: start: 20150209, end: 20150209
  32. LASIX [Suspect]
     Active Substance: FUROSEMIDE
     Indication: DRUG ABUSE
     Dosage: 100 MG, TOTAL
     Route: 048
     Dates: start: 20150209, end: 20150209
  33. XANAX [Suspect]
     Active Substance: ALPRAZOLAM
     Indication: HYPERTENSION
     Dosage: 4 MG, TOTAL
     Route: 048
     Dates: start: 20150209, end: 20150209
  34. KEPPRA [Suspect]
     Active Substance: LEVETIRACETAM
     Indication: ANXIETY
     Dosage: 2000 MG, TOTAL
     Route: 048
     Dates: start: 20150209, end: 20150209
  35. NORVASC [Suspect]
     Active Substance: AMLODIPINE BESYLATE
     Indication: EPILEPSY
     Dosage: 20 MG, TOTAL
     Route: 048
     Dates: start: 20150209, end: 20150209
  36. SIMVASTATIN (SIMVASTATIN) [Suspect]
     Active Substance: SIMVASTATIN
     Indication: DRUG ABUSE
     Dosage: 80 MG, TOTAL
     Dates: start: 20150209, end: 20150209
  37. SIMVASTATIN (SIMVASTATIN) [Suspect]
     Active Substance: SIMVASTATIN
     Indication: ANXIETY
     Dosage: 80 MG, TOTAL
     Dates: start: 20150209, end: 20150209
  38. SIMVASTATIN (SIMVASTATIN) [Suspect]
     Active Substance: SIMVASTATIN
     Indication: HYPERCHOLESTEROLAEMIA
     Dosage: 80 MG, TOTAL
     Dates: start: 20150209, end: 20150209
  39. ZOLPIDEM [Suspect]
     Active Substance: ZOLPIDEM\ZOLPIDEM TARTRATE
     Indication: DRUG ABUSE
     Dosage: 40 MG, TOTAL
     Route: 048
     Dates: start: 20150209, end: 20150209
  40. SIMVASTATIN (SIMVASTATIN) [Suspect]
     Active Substance: SIMVASTATIN
     Indication: HYPERTENSION
     Dosage: 80 MG, TOTAL
     Dates: start: 20150209, end: 20150209

REACTIONS (2)
  - Syncope [None]
  - Drug abuse [None]

NARRATIVE: CASE EVENT DATE: 20150209
